FAERS Safety Report 22021315 (Version 1)
Quarter: 2023Q1

REPORT INFORMATION
  Report Type: Spontaneous
  Country: US (occurrence: None)
  Receive Date: 20230217
  Receipt Date: 20230217
  Transmission Date: 20230418
  Serious: Yes (Hospitalization)
  Sender: FDA-Public Use
  Company Number: None

PATIENT
  Age: 55 Year
  Sex: Female

DRUGS (7)
  1. VEMLIDY [Suspect]
     Active Substance: TENOFOVIR ALAFENAMIDE FUMARATE
     Indication: Hepatitis B
     Dosage: 25 MG ORAL?TAKE 1 TABLET (25 MG) BY MOUTH ONCE DAILY.?
     Route: 048
     Dates: start: 20221214
  2. ALBUTEROL AER HFA [Concomitant]
  3. AMLODIPINE TAB [Concomitant]
  4. METOCLOPRAM TAB [Concomitant]
  5. NEXIUM CAP [Concomitant]
  6. OXYCODONE TAB [Concomitant]
  7. VITAMIN D3 [Concomitant]
     Active Substance: CHOLECALCIFEROL

REACTIONS (3)
  - Pneumonia [None]
  - Brain oedema [None]
  - Generalised oedema [None]

NARRATIVE: CASE EVENT DATE: 20230201
